FAERS Safety Report 9059278 (Version 2)
Quarter: 2013Q2

REPORT INFORMATION
  Report Type: Report from Study
  Country: SE (occurrence: SE)
  Receive Date: 20130211
  Receipt Date: 20130506
  Transmission Date: 20140414
  Serious: Yes (Death, Hospitalization)
  Sender: FDA-Public Use
  Company Number: SE-ROCHE-1189441

PATIENT
  Age: 81 Year
  Sex: Male

DRUGS (13)
  1. RANIBIZUMAB [Suspect]
     Indication: PRODUCT USED FOR UNKNOWN INDICATION
     Route: 050
     Dates: start: 20110218
  2. RANIBIZUMAB [Suspect]
     Route: 050
     Dates: start: 20110701
  3. RANIBIZUMAB [Suspect]
     Route: 050
     Dates: start: 20111121
  4. RANIBIZUMAB [Suspect]
     Route: 050
     Dates: start: 20111222
  5. RANIBIZUMAB [Suspect]
     Route: 050
     Dates: start: 20120814
  6. RANIBIZUMAB [Suspect]
     Route: 050
     Dates: start: 20121002
  7. RANIBIZUMAB [Suspect]
     Route: 050
     Dates: start: 20121120
  8. WARAN [Concomitant]
  9. CLOPIDOGREL [Concomitant]
  10. FURIX [Concomitant]
  11. SIMVASTATIN [Concomitant]
  12. XATRAL [Concomitant]
  13. ALVEDON [Concomitant]

REACTIONS (1)
  - Ischaemic stroke [Fatal]
